FAERS Safety Report 11472589 (Version 1)
Quarter: 2015Q3

REPORT INFORMATION
  Report Type: Spontaneous
  Country: JP (occurrence: JP)
  Receive Date: 20150908
  Receipt Date: 20150908
  Transmission Date: 20151125
  Serious: Yes (Other)
  Sender: FDA-Public Use
  Company Number: GXJP2015JP001056

PATIENT
  Age: 19 Year
  Sex: Female

DRUGS (5)
  1. CARBOPLATIN INTRAVENOUS INFUSION [Suspect]
     Active Substance: CARBOPLATIN
     Indication: INTRACRANIAL GERM CELL TUMOUR
     Route: 065
  2. CISPLATIN. [Suspect]
     Active Substance: CISPLATIN
     Indication: INTRACRANIAL GERM CELL TUMOUR
     Dosage: 20 MG/M2, QD
     Route: 065
  3. ETOPOSIDE INTRAVENOUS INFUSION [Suspect]
     Active Substance: ETOPOSIDE
     Dosage: 60 MG/M2, QD
  4. ETOPOSIDE INTRAVENOUS INFUSION [Suspect]
     Active Substance: ETOPOSIDE
     Indication: INTRACRANIAL GERM CELL TUMOUR
     Route: 065
  5. IFOSFAMIDE. [Suspect]
     Active Substance: IFOSFAMIDE
     Indication: INTRACRANIAL GERM CELL TUMOUR
     Dosage: 900 MG/M2, QD
     Route: 065

REACTIONS (4)
  - Generalised oedema [Unknown]
  - Renal impairment [Unknown]
  - Abnormal behaviour [Unknown]
  - Concomitant disease progression [Unknown]
